FAERS Safety Report 11357086 (Version 1)
Quarter: 2015Q3

REPORT INFORMATION
  Report Type: Spontaneous
  Country: US (occurrence: US)
  Receive Date: 20150803
  Receipt Date: 20150803
  Transmission Date: 20151125
  Serious: No
  Sender: FDA-Public Use
  Company Number: US-ELI_LILLY_AND_COMPANY-US201306004130

PATIENT
  Age: 35 Year
  Sex: Male

DRUGS (2)
  1. RISPERDAL [Concomitant]
     Active Substance: RISPERIDONE
     Dosage: UNK, UNKNOWN
     Route: 065
  2. STRATTERA [Suspect]
     Active Substance: ATOMOXETINE HYDROCHLORIDE
     Indication: ATTENTION DEFICIT/HYPERACTIVITY DISORDER
     Dosage: 30 MG, UNKNOWN
     Route: 065
     Dates: start: 2013, end: 2013

REACTIONS (1)
  - Restless legs syndrome [Recovered/Resolved]
